FAERS Safety Report 7482171-6 (Version None)
Quarter: 2011Q2

REPORT INFORMATION
  Report Type: 
  Country: None (occurrence: None)
  Receive Date: 20110516
  Receipt Date: 20110509
  Transmission Date: 20111010
  Serious: No
  Sender: FDA-Public Use
  Company Number: US-PFIZER INC-2011100328

PATIENT
  Sex: Female
  Weight: 52.608 kg

DRUGS (9)
  1. XANAX [Suspect]
     Indication: ANXIETY
     Dosage: UNK
  2. PROZAC [Concomitant]
     Indication: ANXIETY
  3. LIPITOR [Concomitant]
     Dosage: 10 MG, 1X/DAY
     Route: 048
     Dates: start: 20050101
  4. XANAX [Suspect]
     Indication: SLEEP DISORDER
  5. PLAVIX [Concomitant]
     Indication: ANTICOAGULANT THERAPY
     Dosage: 75 MG, 1X/DAY
     Route: 048
     Dates: start: 20100101
  6. ALPRAZOLAM [Suspect]
     Indication: ANXIETY
     Dosage: 0.5 MG, 1X/DAY
     Route: 048
     Dates: start: 20110314, end: 20110101
  7. ALPRAZOLAM [Suspect]
     Indication: SLEEP DISORDER
  8. PROZAC [Concomitant]
     Indication: DEPRESSION
     Dosage: 20 MG, 1X/DAY
     Route: 048
     Dates: start: 20070101
  9. BENADRYL [Concomitant]
     Indication: SLEEP DISORDER
     Dosage: UNK

REACTIONS (5)
  - ANXIETY [None]
  - FEELING ABNORMAL [None]
  - NEGATIVE THOUGHTS [None]
  - NIGHTMARE [None]
  - PALPITATIONS [None]
